FAERS Safety Report 22160269 (Version 1)
Quarter: 2023Q1

REPORT INFORMATION
  Report Type: Spontaneous
  Country: US (occurrence: None)
  Receive Date: 20230330
  Receipt Date: 20230330
  Transmission Date: 20230418
  Serious: Yes (Hospitalization)
  Sender: FDA-Public Use
  Company Number: None

PATIENT
  Age: 54 Year
  Sex: Female

DRUGS (1)
  1. BENLYSTA [Suspect]
     Active Substance: BELIMUMAB
     Indication: Systemic lupus erythematosus
     Dosage: 200MG OTHER  SUBCUTANEOUS?
     Route: 058
     Dates: start: 201802

REACTIONS (3)
  - Neck pain [None]
  - Hypoaesthesia [None]
  - Gait disturbance [None]

NARRATIVE: CASE EVENT DATE: 20230313
